FAERS Safety Report 15285213 (Version 2)
Quarter: 2020Q3

REPORT INFORMATION
  Report Type: Report from Study
  Country: UA (occurrence: UA)
  Receive Date: 20180816
  Receipt Date: 20180820
  Transmission Date: 20201105
  Serious: Yes (Hospitalization)
  Sender: FDA-Public Use
  Company Number: UA-JNJFOC-20180812809

PATIENT
  Age: 75 Year
  Sex: Male
  Weight: 99 kg

DRUGS (12)
  1. ATORIS [Concomitant]
     Active Substance: ATORVASTATIN CALCIUM
     Indication: ANGINA PECTORIS
     Dates: start: 20180618
  2. TRITACE [Concomitant]
     Active Substance: RAMIPRIL
     Indication: ESSENTIAL HYPERTENSION
     Route: 048
     Dates: start: 201805
  3. BISEPTOL [Concomitant]
     Active Substance: SULFAMETHOXAZOLE\TRIMETHOPRIM
     Indication: ANTIFUNGAL PROPHYLAXIS
     Route: 048
     Dates: start: 20180619
  4. ATORIS [Concomitant]
     Active Substance: ATORVASTATIN CALCIUM
     Indication: ESSENTIAL HYPERTENSION
     Dates: start: 20180618
  5. NITROGLYCERIN. [Concomitant]
     Active Substance: NITROGLYCERIN
     Indication: ANGINA PECTORIS
     Dates: start: 20180629
  6. OMEPRAZOLE. [Concomitant]
     Active Substance: OMEPRAZOLE
     Indication: PROPHYLAXIS AGAINST GASTROINTESTINAL ULCER
     Route: 048
     Dates: start: 20180619
  7. DARATUMUMAB [Suspect]
     Active Substance: DARATUMUMAB
     Indication: PLASMA CELL MYELOMA
     Route: 042
     Dates: start: 20180619, end: 20180731
  8. PREDUCTAL [Concomitant]
     Active Substance: TRIMETAZIDINE DIHYDROCHLORIDE
     Indication: CARDIOVASCULAR EVENT PROPHYLAXIS
     Dates: start: 20180619
  9. DARATUMUMAB [Suspect]
     Active Substance: DARATUMUMAB
     Route: 042
  10. CALCIUM D3 [Concomitant]
     Active Substance: CALCIUM\CHOLECALCIFEROL
     Indication: PROPHYLAXIS
     Route: 048
     Dates: start: 20180619
  11. POTASSIUM ASPARTATE AND MAGNESIUM ASPARTATE [Concomitant]
     Indication: MINERAL SUPPLEMENTATION
     Dates: start: 20180627
  12. ACYCLOVIR. [Concomitant]
     Active Substance: ACYCLOVIR
     Indication: ANTIVIRAL PROPHYLAXIS
     Route: 048
     Dates: start: 201309

REACTIONS (1)
  - Angina pectoris [Recovered/Resolved]

NARRATIVE: CASE EVENT DATE: 20180807
